FAERS Safety Report 5916425-9 (Version None)
Quarter: 2008Q4

REPORT INFORMATION
  Report Type: 
  Country: None (occurrence: None)
  Receive Date: 20081013
  Receipt Date: 20080910
  Transmission Date: 20090506
  Serious: No
  Sender: FDA-Public Use
  Company Number: US-BAYER-200833498NA

PATIENT
  Sex: Female

DRUGS (1)
  1. MIRENA [Suspect]
     Indication: DRUG USE FOR UNKNOWN INDICATION
     Route: 015
     Dates: start: 20080709

REACTIONS (4)
  - ABDOMINAL PAIN [None]
  - HEADACHE [None]
  - MOOD SWINGS [None]
  - VAGINAL HAEMORRHAGE [None]
